FAERS Safety Report 7904386-2 (Version None)
Quarter: 2011Q4

REPORT INFORMATION
  Report Type: 
  Country: None (occurrence: None)
  Receive Date: 20111109
  Receipt Date: 20111031
  Transmission Date: 20120403
  Serious: Yes (Life-Threatening, Hospitalization, Other)
  Sender: FDA-Public Use
  Company Number: US-BAYER-201029174NA

PATIENT
  Age: 24 Year
  Sex: Female
  Weight: 66 kg

DRUGS (4)
  1. YAZ [Suspect]
     Dosage: UNK
     Dates: start: 20080404, end: 20080704
  2. YASMIN [Suspect]
     Indication: CONTRACEPTION
     Dosage: UNK
     Dates: start: 20080225, end: 20080323
  3. YAZ [Suspect]
     Indication: CONTRACEPTION
     Dosage: UNK
     Dates: start: 20070402, end: 20071001
  4. YAZ [Suspect]
     Dosage: UNK
     Dates: start: 20090406, end: 20090817

REACTIONS (6)
  - PULMONARY EMBOLISM [None]
  - LUNG DISORDER [None]
  - ASTHENIA [None]
  - PAIN [None]
  - PULMONARY INFARCTION [None]
  - FATIGUE [None]
